FAERS Safety Report 9528241 (Version 7)
Quarter: 2014Q3

REPORT INFORMATION
  Report Type: Spontaneous
  Country: JP (occurrence: JP)
  Receive Date: 20130917
  Receipt Date: 20140819
  Transmission Date: 20150326
  Serious: Yes (Death, Hospitalization, Other)
  Sender: FDA-Public Use
  Company Number: PHHY2013JP101528

PATIENT
  Age: 79 Year
  Sex: Female

DRUGS (5)
  1. WARFARIN [Suspect]
     Active Substance: WARFARIN
     Indication: DEEP VEIN THROMBOSIS
     Dosage: 4 MG, QD
     Route: 048
     Dates: start: 20130403
  2. CASAL [Concomitant]
     Active Substance: VIDARABINE
     Indication: HERPES ZOSTER
     Dosage: 0.5 G, BID
     Route: 061
     Dates: start: 20130710, end: 20130717
  3. FAMVIR [Suspect]
     Active Substance: FAMCICLOVIR
     Indication: HERPES ZOSTER
     Dosage: 500 MG, TID
     Route: 048
     Dates: start: 20130710, end: 20130717
  4. AZILVA [Suspect]
     Active Substance: AZILSARTAN KAMEDOXOMIL
     Indication: HYPERTENSION
     Dosage: 20 MG, QD
     Route: 048
     Dates: start: 20120608, end: 20130821
  5. MILTAX [Suspect]
     Active Substance: VIDARABINE
     Indication: MYALGIA
     Dosage: 30 MG, BID
     Route: 061
     Dates: start: 20130710, end: 20130810

REACTIONS (3)
  - Proteinuria [Not Recovered/Not Resolved]
  - Plasma cell myeloma [Fatal]
  - Renal failure [Not Recovered/Not Resolved]

NARRATIVE: CASE EVENT DATE: 20130808
